FAERS Safety Report 9565928 (Version 3)
Quarter: 2014Q2

REPORT INFORMATION
  Report Type: Spontaneous
  Country: US (occurrence: US)
  Receive Date: 20130930
  Receipt Date: 20140501
  Transmission Date: 20141212
  Serious: Yes (Hospitalization, Other)
  Sender: FDA-Public Use
  Company Number: US-PURDUE-USA-2013-0106852

PATIENT
  Age: 37 Year
  Sex: Female

DRUGS (5)
  1. OXYCONTIN (NDA 22-272) [Suspect]
     Indication: BACK PAIN
     Dosage: 30 MG, Q12H
     Route: 048
     Dates: start: 20130913, end: 20130915
  2. OXYCONTIN (NDA 22-272) [Suspect]
     Indication: PAIN IN EXTREMITY
     Dosage: 30 MG, BID
     Dates: start: 201310, end: 201310
  3. MORPHINE SULFATE [Suspect]
     Indication: PAIN
     Dosage: 10 MG, Q12H
     Route: 048
     Dates: start: 2003
  4. OXYCODONE HYDROCHLORIDE (SIMILAR TO NDA 22-272) [Concomitant]
     Indication: BREAKTHROUGH PAIN
     Dosage: 10 MG, 4-5 TIMES DAILY
     Route: 048
  5. AMBIEN [Concomitant]
     Indication: SLEEP DISORDER
     Dosage: 5 MG, HS
     Route: 048

REACTIONS (10)
  - Myocardial infarction [Unknown]
  - Gastrointestinal disorder [Unknown]
  - Gastrointestinal obstruction [Not Recovered/Not Resolved]
  - Aphagia [Unknown]
  - Pyrexia [Not Recovered/Not Resolved]
  - Abdominal pain upper [Not Recovered/Not Resolved]
  - Vomiting [Unknown]
  - Flatulence [Unknown]
  - Abdominal distension [Unknown]
  - Influenza like illness [Recovered/Resolved]
